FAERS Safety Report 12747363 (Version 1)
Quarter: 2016Q3

REPORT INFORMATION
  Report Type: Spontaneous
  Country: US (occurrence: US)
  Receive Date: 20160915
  Receipt Date: 20160915
  Transmission Date: 20161109
  Serious: No
  Sender: FDA-Public Use
  Company Number: US-JAZZ-2016-US-009603

PATIENT
  Sex: Female

DRUGS (36)
  1. XYREM [Suspect]
     Active Substance: SODIUM OXYBATE
     Indication: NARCOLEPSY
     Dosage: 4.5 G, BID
     Route: 048
     Dates: start: 201207, end: 201209
  2. MELOXICAM. [Concomitant]
     Active Substance: MELOXICAM
  3. CLARITIN [Concomitant]
     Active Substance: LORATADINE
  4. FLEXERIL [Concomitant]
     Active Substance: CYCLOBENZAPRINE HYDROCHLORIDE
  5. ADDERALL [Concomitant]
     Active Substance: AMPHETAMINE ASPARTATE\AMPHETAMINE SULFATE\DEXTROAMPHETAMINE SACCHARATE\DEXTROAMPHETAMINE SULFATE
     Dosage: 30 MG, UNK
  6. BACLOFEN. [Concomitant]
     Active Substance: BACLOFEN
  7. DICLOFENAC [Concomitant]
     Active Substance: DICLOFENAC
  8. SINGULAIR [Concomitant]
     Active Substance: MONTELUKAST SODIUM
  9. LORTAB [Concomitant]
     Active Substance: ACETAMINOPHEN\HYDROCODONE BITARTRATE
  10. TRAMADOL HCL [Concomitant]
     Active Substance: TRAMADOL HYDROCHLORIDE
  11. ADDERALL [Concomitant]
     Active Substance: AMPHETAMINE ASPARTATE\AMPHETAMINE SULFATE\DEXTROAMPHETAMINE SACCHARATE\DEXTROAMPHETAMINE SULFATE
     Dosage: 10 MG, UNK
  12. GABAPENTIN. [Concomitant]
     Active Substance: GABAPENTIN
  13. LEVOTHYROXINE. [Concomitant]
     Active Substance: LEVOTHYROXINE
  14. MECLIZINE HCL [Concomitant]
     Active Substance: MECLIZINE HYDROCHLORIDE
     Indication: DIZZINESS
  15. MEDROL [Concomitant]
     Active Substance: METHYLPREDNISOLONE
  16. XYREM [Suspect]
     Active Substance: SODIUM OXYBATE
     Dosage: 4.5 G, BID
     Route: 048
     Dates: start: 201210
  17. FLECTOR [Concomitant]
     Active Substance: DICLOFENAC EPOLAMINE
  18. MUPIROCIN. [Concomitant]
     Active Substance: MUPIROCIN
  19. TERBINAFINE HCL [Concomitant]
     Active Substance: TERBINAFINE HYDROCHLORIDE
  20. AMPHETAMINE SALTS [Concomitant]
     Active Substance: AMPHETAMINE ASPARTATE\AMPHETAMINE SULFATE\DEXTROAMPHETAMINE SACCHARATE\DEXTROAMPHETAMINE SULFATE
  21. POTASSIUM CL [Concomitant]
     Active Substance: POTASSIUM CHLORIDE
  22. MOBIC [Concomitant]
     Active Substance: MELOXICAM
  23. NIFEDIPINE. [Concomitant]
     Active Substance: NIFEDIPINE
  24. XYREM [Suspect]
     Active Substance: SODIUM OXYBATE
     Dosage: DOSE ADJUSTMENTS
     Route: 048
  25. FLUOXETINE HCL [Concomitant]
     Active Substance: FLUOXETINE HYDROCHLORIDE
  26. HYDROCODONE BITARTRATE AND ACETAMINOPHEN [Concomitant]
     Active Substance: ACETAMINOPHEN\HYDROCODONE BITARTRATE
     Indication: PAIN
  27. MULTIVITAMIN [Concomitant]
     Active Substance: VITAMINS
  28. VOLTAREN [Concomitant]
     Active Substance: DICLOFENAC SODIUM
  29. ZYPREXA ZYDIS [Concomitant]
     Active Substance: OLANZAPINE
  30. CALCIUM + VITAMIN D [Concomitant]
     Active Substance: CALCIUM\VITAMIN D
  31. LEVOXYL [Concomitant]
     Active Substance: LEVOTHYROXINE SODIUM
  32. MODAFINIL. [Concomitant]
     Active Substance: MODAFINIL
  33. AMFETAMINE W/DEXAMFETAMINE [Concomitant]
     Active Substance: AMPHETAMINE SULFATE\DEXTROAMPHETAMINE
  34. FISH OIL W/VITAMIN D NOS [Concomitant]
  35. MONTELUKAST [Concomitant]
     Active Substance: MONTELUKAST SODIUM
  36. FLONASE [Concomitant]
     Active Substance: FLUTICASONE PROPIONATE

REACTIONS (1)
  - Therapeutic response decreased [Unknown]
